FAERS Safety Report 7918761-3 (Version None)
Quarter: 2011Q4

REPORT INFORMATION
  Report Type: 
  Country: None (occurrence: None)
  Receive Date: 20111114
  Receipt Date: 20111103
  Transmission Date: 20120403
  Serious: Yes (Other)
  Sender: FDA-Public Use
  Company Number: ACO_27786_2011

PATIENT
  Sex: Female

DRUGS (4)
  1. BACLOFEN [Concomitant]
  2. AVONEX [Suspect]
     Indication: PRODUCT USED FOR UNKNOWN INDICATION
  3. REQUIP [Concomitant]
  4. AMPYRA [Suspect]
     Indication: GAIT DISTURBANCE
     Dosage: 10 MG,
     Dates: start: 20101108

REACTIONS (1)
  - LIVER FUNCTION TEST ABNORMAL [None]
